FAERS Safety Report 9257536 (Version 1)
Quarter: 2013Q1

REPORT INFORMATION
  Report Type: Spontaneous
  Country: US (occurrence: None)
  Receive Date: 20121212
  Receipt Date: 20121212
  Transmission Date: 20140127
  Serious: No
  Sender: FDA-Public Use
  Company Number: 1210USA005025

PATIENT
  Age: 62 Year
  Sex: Female

DRUGS (3)
  1. PEGINTRON [Suspect]
     Indication: HEPATITIS C
     Dosage: VIAL
     Dates: start: 20120424, end: 20120606
  2. REBETOL [Suspect]
     Indication: HEPATITIS C
     Dates: start: 20120424
  3. VICTRELIS [Suspect]
     Indication: HEPATITIS C
     Dates: start: 20120601

REACTIONS (1)
  - Dry throat [None]
